FAERS Safety Report 5017763-7 (Version None)
Quarter: 2006Q2

REPORT INFORMATION
  Report Type: 
  Country: None (occurrence: None)
  Receive Date: 20060605
  Receipt Date: 20060524
  Transmission Date: 20061013
  Serious: Yes (Hospitalization)
  Sender: FDA-Public Use
  Company Number: US-JNJFOC-20030904439

PATIENT
  Sex: Female
  Weight: 56.7 kg

DRUGS (29)
  1. RISPERDAL [Suspect]
     Route: 048
  2. RISPERDAL [Suspect]
     Dosage: (RESTARTED ON AN UNSPECIFIED DATE)
     Route: 048
  3. RISPERDAL [Suspect]
     Dosage: (DECREASED DOSE, THEN DISCONTINUED)
     Route: 048
  4. RISPERDAL [Suspect]
     Route: 048
  5. RISPERDAL [Suspect]
     Route: 048
  6. RISPERDAL [Suspect]
     Dosage: (AT BEDTIME X 4 WEEKS)
     Route: 048
  7. RISPERDAL [Suspect]
     Route: 048
  8. RISPERDAL [Suspect]
     Route: 048
  9. RISPERDAL [Suspect]
     Dosage: (AT BEDTIME)
     Route: 048
  10. RISPERDAL [Suspect]
     Indication: BIPOLAR DISORDER
     Dosage: (TEMPORARILY ^RAN OUT^ IN AUG-1996)
     Route: 048
  11. EFFEXOR [Concomitant]
  12. WELLBUTRIN [Concomitant]
  13. ZOLOFT [Concomitant]
  14. ZOLOFT [Concomitant]
     Dosage: (WITH LUNCH)
  15. DESYREL [Concomitant]
  16. PRILOSEC [Concomitant]
  17. ZANTAC [Concomitant]
  18. MYLANTA [Concomitant]
  19. MYLANTA [Concomitant]
  20. MYLANTA [Concomitant]
  21. FLEXERIL [Concomitant]
  22. TYLENOL W/ CODEINE NO. 3 [Concomitant]
  23. TYLENOL W/ CODEINE NO. 3 [Concomitant]
  24. ULTRAM [Concomitant]
  25. TYLENOL (GELTAB) [Concomitant]
  26. BENADRYL [Concomitant]
  27. EASPIRIN [Concomitant]
  28. ESCITALOPRAM OXALATE [Concomitant]
  29. CARDIZEM [Concomitant]

REACTIONS (42)
  - AFFECT LABILITY [None]
  - ANAEMIA [None]
  - ANXIETY [None]
  - ASTHENIA [None]
  - BALANCE DISORDER [None]
  - BREAST TENDERNESS [None]
  - CONFUSIONAL STATE [None]
  - CONVULSION [None]
  - CRYING [None]
  - DECREASED ACTIVITY [None]
  - DEPRESSION [None]
  - DISTURBANCE IN ATTENTION [None]
  - DRY MOUTH [None]
  - DYSKINESIA [None]
  - DYSPHAGIA [None]
  - EATING DISORDER SYMPTOM [None]
  - FAECES DISCOLOURED [None]
  - FALL [None]
  - HALLUCINATION, AUDITORY [None]
  - HALLUCINATION, VISUAL [None]
  - HELICOBACTER INFECTION [None]
  - HOMICIDAL IDEATION [None]
  - HYPERPHAGIA [None]
  - INADEQUATE DIET [None]
  - INSOMNIA [None]
  - IRON DEFICIENCY ANAEMIA [None]
  - JOINT STIFFNESS [None]
  - MENORRHAGIA [None]
  - MUSCLE SPASMS [None]
  - NECK PAIN [None]
  - REFLUX OESOPHAGITIS [None]
  - SCHIZOPHRENIA [None]
  - SELF ESTEEM DECREASED [None]
  - SOCIAL AVOIDANT BEHAVIOUR [None]
  - SOCIAL PHOBIA [None]
  - SOMNOLENCE [None]
  - TARDIVE DYSKINESIA [None]
  - TENDONITIS [None]
  - TREMOR [None]
  - VOMITING [None]
  - WEIGHT DECREASED [None]
  - WEIGHT INCREASED [None]
